FAERS Safety Report 16514217 (Version 7)
Quarter: 2019Q3

REPORT INFORMATION
  Report Type: Spontaneous
  Country: CZ (occurrence: CZ)
  Receive Date: 20190701
  Receipt Date: 20190904
  Transmission Date: 20191004
  Serious: Yes (Death, Hospitalization, Congenital Anomaly)
  Sender: FDA-Public Use
  Company Number: CZ-BIOGEN-2019BI00755975

PATIENT

DRUGS (2)
  1. AVONEX [Suspect]
     Active Substance: INTERFERON BETA-1A
     Indication: MATERNAL EXPOSURE TIMING UNSPECIFIED
     Route: 064
     Dates: start: 20180515, end: 201904
  2. AVONEX [Suspect]
     Active Substance: INTERFERON BETA-1A
     Route: 064
     Dates: start: 20070723, end: 20190401

REACTIONS (2)
  - Transposition of the great vessels [Recovered/Resolved]
  - Foetal exposure during pregnancy [Recovered/Resolved]

NARRATIVE: CASE EVENT DATE: 20190226
